FAERS Safety Report 4711204-2 (Version None)
Quarter: 2005Q3

REPORT INFORMATION
  Report Type: 
  Country: None (occurrence: None)
  Receive Date: 20050708
  Receipt Date: 20050624
  Transmission Date: 20060218
  Serious: Yes (Hospitalization)
  Sender: FDA-Public Use
  Company Number: 8010936

PATIENT
  Age: 9 Year
  Sex: Male
  Weight: 25 kg

DRUGS (2)
  1. KEPPRA [Suspect]
     Indication: EPILEPSY
     Dosage: 259 NG 2/D PO
     Route: 048
     Dates: start: 20050601, end: 20050623
  2. OXYBUTYNIN [Suspect]
     Indication: NEUROGENIC BLADDER
     Dosage: PO
     Route: 048
     Dates: start: 20030101, end: 20050619

REACTIONS (1)
  - HYPERTHERMIA MALIGNANT [None]
